FAERS Safety Report 4971537-1 (Version None)
Quarter: 2006Q2

REPORT INFORMATION
  Report Type: 
  Country: None (occurrence: None)
  Receive Date: 20060407
  Receipt Date: 20060329
  Transmission Date: 20061013
  Serious: No
  Sender: FDA-Public Use
  Company Number: 06H-163-0306914-00

PATIENT
  Age: 24 Year
  Sex: Female

DRUGS (2)
  1. KETOROLAC TROMETHAMINE [Suspect]
     Indication: HEADACHE
     Dosage: 30 MG, ONCE, INTRAVENOUS
     Route: 042
     Dates: start: 20060328, end: 20060328
  2. TYLENOL W/ CODEINE [Concomitant]

REACTIONS (4)
  - AREFLEXIA [None]
  - COMA [None]
  - CORNEAL REFLEX DECREASED [None]
  - FALL [None]
